FAERS Safety Report 5536016-1 (Version None)
Quarter: 2007Q4

REPORT INFORMATION
  Report Type: 
  Country: None (occurrence: None)
  Receive Date: 20071204
  Receipt Date: 20071120
  Transmission Date: 20080405
  Serious: Yes (Hospitalization)
  Sender: FDA-Public Use
  Company Number: MPS1-10785

PATIENT
  Sex: Male
  Weight: 37 kg

DRUGS (5)
  1. ALDURAZYME [Suspect]
     Indication: MUCOPOLYSACCHARIDOSIS I
     Dosage: 20 MG QWK IV
     Route: 042
     Dates: start: 20070103
  2. KEPPRA [Concomitant]
  3. ERYTHROMYCIN [Concomitant]
  4. PEPCID [Concomitant]
  5. REMERON [Concomitant]

REACTIONS (4)
  - DEHYDRATION [None]
  - HYPERNATRAEMIA [None]
  - RENAL FAILURE ACUTE [None]
  - WEIGHT DECREASED [None]
